FAERS Safety Report 6268080-9 (Version None)
Quarter: 2009Q3

REPORT INFORMATION
  Report Type: 
  Country: None (occurrence: None)
  Receive Date: 20090713
  Receipt Date: 20090701
  Transmission Date: 20100115
  Serious: Yes (Hospitalization)
  Sender: FDA-Public Use
  Company Number: 2009-02695

PATIENT
  Age: 62 Year
  Sex: Male

DRUGS (1)
  1. VELCADE [Suspect]
     Indication: MULTIPLE MYELOMA
     Dosage: 2.5 MG, SUBCUTANEOUS
     Route: 058
     Dates: start: 20090522, end: 20090618

REACTIONS (1)
  - CHEST PAIN [None]
